FAERS Safety Report 19741926 (Version 2)
Quarter: 2021Q3

REPORT INFORMATION
  Report Type: Spontaneous
  Country: US (occurrence: US)
  Receive Date: 20210825
  Receipt Date: 20210831
  Transmission Date: 20211014
  Serious: No
  Sender: FDA-Public Use
  Company Number: US-JNJFOC-20210822675

PATIENT
  Age: 24 Year
  Sex: Male
  Weight: 70.37 kg

DRUGS (1)
  1. SIMPONI [Suspect]
     Active Substance: GOLIMUMAB
     Indication: COLITIS ULCERATIVE
     Dosage: 100.00 MG/ML
     Route: 058
     Dates: start: 2020

REACTIONS (6)
  - Device leakage [Unknown]
  - Device malfunction [Unknown]
  - Off label use [Unknown]
  - Accidental exposure to product [Unknown]
  - Underdose [Unknown]
  - Product use issue [Unknown]

NARRATIVE: CASE EVENT DATE: 2020
